FAERS Safety Report 12906159 (Version 1)
Quarter: 2016Q4

REPORT INFORMATION
  Report Type: Spontaneous
  Country: US (occurrence: US)
  Receive Date: 20161103
  Receipt Date: 20161103
  Transmission Date: 20170207
  Serious: No
  Sender: FDA-Public Use
  Company Number: US-TEVA-680747USA

PATIENT
  Sex: Female
  Weight: 62.65 kg

DRUGS (1)
  1. HYDROXYCARBAMIDE [Suspect]
     Active Substance: HYDROXYUREA
     Indication: PLATELET COUNT INCREASED
     Dates: start: 20160724

REACTIONS (1)
  - Alopecia [Unknown]
